FAERS Safety Report 25701937 (Version 2)
Quarter: 2025Q4

REPORT INFORMATION
  Report Type: Spontaneous
  Country: US (occurrence: US)
  Receive Date: 20250819
  Receipt Date: 20251215
  Transmission Date: 20260117
  Serious: Yes (Other)
  Sender: BRISTOL-MYERS SQUIBB COMPANY
  Company Number: US-BRISTOL-MYERS SQUIBB COMPANY-2025-115202

PATIENT
  Age: 65 Year
  Sex: Female

DRUGS (1)
  1. ZEPOSIA [Suspect]
     Active Substance: OZANIMOD HYDROCHLORIDE
     Indication: Primary progressive multiple sclerosis
     Route: 048

REACTIONS (9)
  - Fatigue [Unknown]
  - Balance disorder [Unknown]
  - Fall [Unknown]
  - Off label use [Unknown]
  - Poor quality sleep [Unknown]
  - Foot fracture [Unknown]
  - Seasonal allergy [Unknown]
  - Tremor [Unknown]
  - Limb discomfort [Not Recovered/Not Resolved]
